FAERS Safety Report 13616196 (Version 1)
Quarter: 2017Q2

REPORT INFORMATION
  Report Type: Spontaneous
  Country: US (occurrence: US)
  Receive Date: 20170606
  Receipt Date: 20170606
  Transmission Date: 20170830
  Serious: No
  Sender: FDA-Public Use
  Company Number: US-PFIZER INC-2017240479

PATIENT
  Age: 67 Year
  Sex: Female

DRUGS (1)
  1. XELJANZ [Suspect]
     Active Substance: TOFACITINIB CITRATE
     Dosage: 5 MG, UNK
     Dates: start: 20170323

REACTIONS (6)
  - Injury [Unknown]
  - Road traffic accident [Unknown]
  - Peripheral swelling [Unknown]
  - Arthropathy [Unknown]
  - Pain in extremity [Unknown]
  - Osteoporosis [Unknown]
